FAERS Safety Report 26086716 (Version 1)
Quarter: 2025Q4

REPORT INFORMATION
  Report Type: Spontaneous
  Country: JP (occurrence: JP)
  Receive Date: 20251125
  Receipt Date: 20251125
  Transmission Date: 20260118
  Serious: Yes (Other)
  Sender: AMGEN
  Company Number: JP-AMGEN-JPNSP2025228463

PATIENT

DRUGS (4)
  1. BEVACIZUMAB [Suspect]
     Active Substance: BEVACIZUMAB
     Indication: Colorectal cancer metastatic
     Dosage: 5 MILLIGRAM/KILOGRAM, (ON DAY 1)
     Route: 040
  2. FLUOROURACIL [Concomitant]
     Active Substance: FLUOROURACIL
     Indication: Colorectal cancer metastatic
     Dosage: 1250 MILLIGRAM, (THROUGH 46 HOURS CONTINUOUS INFUSION)
     Route: 065
  3. LEUCOVORIN [Concomitant]
     Active Substance: LEUCOVORIN\LEUCOVORIN CALCIUM
     Indication: Colorectal cancer metastatic
     Dosage: 200 MILLIGRAM/KILOGRAM (ON DAY 1)
     Route: 040
  4. LEUCOVORIN [Concomitant]
     Active Substance: LEUCOVORIN\LEUCOVORIN CALCIUM
     Dosage: 200 MILLIGRAM/SQ. METER, (ON DAY 1)
     Route: 040

REACTIONS (15)
  - Anaemia [Unknown]
  - Hepatic infection [Unknown]
  - Hepatic artery occlusion [Unknown]
  - Hypersensitivity [Unknown]
  - Colorectal cancer metastatic [Unknown]
  - Neuropathy peripheral [Unknown]
  - Therapy partial responder [Unknown]
  - Pyrexia [Unknown]
  - Aspartate aminotransferase increased [Unknown]
  - Diarrhoea [Unknown]
  - Decreased appetite [Unknown]
  - Jaundice [Unknown]
  - Fatigue [Unknown]
  - Device related infection [Unknown]
  - Complication associated with device [Unknown]
